FAERS Safety Report 8475891-8 (Version None)
Quarter: 2012Q2

REPORT INFORMATION
  Report Type: 
  Country: None (occurrence: None)
  Receive Date: 20120628
  Receipt Date: 20120627
  Transmission Date: 20120825
  Serious: Yes (Other)
  Sender: FDA-Public Use
  Company Number: US-PFIZER INC-2012114090

PATIENT
  Sex: Female

DRUGS (3)
  1. CELEBREX [Suspect]
     Dosage: UNK
  2. ZOLOFT [Suspect]
     Dosage: UNK
  3. PREMARIN [Suspect]
     Dosage: UNK

REACTIONS (1)
  - BLINDNESS [None]
